FAERS Safety Report 16079308 (Version 1)
Quarter: 2019Q1

REPORT INFORMATION
  Report Type: Spontaneous
  Country: US (occurrence: US)
  Receive Date: 20190315
  Receipt Date: 20190315
  Transmission Date: 20190418
  Serious: No
  Sender: FDA-Public Use
  Company Number: US-TEVA-2019-US-1014552

PATIENT
  Sex: Female

DRUGS (1)
  1. BUPRENORPHINE PATCH [Suspect]
     Active Substance: BUPRENORPHINE
     Dosage: DOSE STRENGTH 10 MCG/HR
     Route: 062
     Dates: start: 20190211

REACTIONS (8)
  - Pruritus [Unknown]
  - Malaise [Unknown]
  - Drug ineffective [Unknown]
  - Pain [Unknown]
  - Gastrointestinal disorder [Unknown]
  - Product adhesion issue [Unknown]
  - Application site pain [Unknown]
  - Product design issue [Unknown]

NARRATIVE: CASE EVENT DATE: 20190211
